FAERS Safety Report 8974538 (Version 2)
Quarter: 2012Q4

REPORT INFORMATION
  Report Type: 
  Country: BR (occurrence: BR)
  Receive Date: 20121220
  Receipt Date: 20121227
  Transmission Date: 20130627
  Serious: Yes (Other)
  Sender: FDA-Public Use
  Company Number: BR-COVIDIEN/TYCO HEALTHCARE/MALLINCKRODT-T201204335

PATIENT
  Age: 31 Year
  Sex: Female

DRUGS (11)
  1. OPTIRAY [Suspect]
     Indication: COMPUTERISED TOMOGRAM
     Dosage: 120 ml, single
     Route: 042
     Dates: start: 20121210, end: 20121210
  2. OPTIRAY [Suspect]
     Dosage: 50 ml, single
     Route: 048
     Dates: start: 20121210, end: 20121210
  3. OPTIRAY [Suspect]
     Dosage: 30 ml, single
     Route: 054
     Dates: start: 20121210, end: 20121210
  4. HEPARIN [Concomitant]
     Dosage: 1 ampoule, 8/8 h
     Route: 058
  5. RANITIDINE [Concomitant]
     Dosage: 1 ampoule, 8/8 h
     Route: 042
  6. BROMOPRIDE [Concomitant]
     Dosage: 1 ampoule, 8/8 h
     Route: 042
  7. DIPIRONE [Concomitant]
     Dosage: 1 ampoule. 6/6 h
     Route: 042
  8. NUBAIN [Concomitant]
     Dosage: 1 ampoule, 6/6 h
     Route: 042
  9. CEFTRIAXONE [Concomitant]
     Dosage: 2 g, qd
     Route: 042
  10. CAPTOPRIL [Concomitant]
     Dosage: 25 mg, prn
     Route: 065
  11. KETOPROFEN [Concomitant]
     Dosage: 100 mg, prn
     Route: 065

REACTIONS (5)
  - Oxygen saturation decreased [Recovered/Resolved]
  - Dyspnoea [Recovered/Resolved]
  - Pruritus [Recovered/Resolved]
  - Rash [Recovered/Resolved]
  - Incorrect route of drug administration [Recovered/Resolved]
